FAERS Safety Report 5230189-6 (Version None)
Quarter: 2007Q1

REPORT INFORMATION
  Report Type: 
  Country: None (occurrence: None)
  Receive Date: 20070206
  Receipt Date: 20060926
  Transmission Date: 20070707
  Serious: No
  Sender: FDA-Public Use
  Company Number: US-GLAXOSMITHKLINE-A0621498A

PATIENT
  Age: 45 Year
  Sex: Female

DRUGS (7)
  1. PAXIL CR [Suspect]
     Indication: DEPRESSION
     Dosage: 37.5MG PER DAY
     Route: 048
  2. NEXIUM [Concomitant]
  3. ZELNORM [Concomitant]
  4. LEVOXYL [Concomitant]
  5. FIORINAL [Concomitant]
  6. SOMA [Concomitant]
  7. VIVELLE [Concomitant]

REACTIONS (2)
  - NAUSEA [None]
  - VOMITING [None]
